FAERS Safety Report 5188121-X (Version None)
Quarter: 2006Q4

REPORT INFORMATION
  Report Type: 
  Country: None (occurrence: None)
  Receive Date: 20061218
  Receipt Date: 20061218
  Transmission Date: 20070319
  Serious: Yes (Hospitalization)
  Sender: FDA-Public Use
  Company Number: None

PATIENT
  Age: 45 Year
  Sex: Female

DRUGS (1)
  1. CETUXIMAB [Suspect]
     Indication: BREAST CANCER
     Dosage: 648 MG IV
     Route: 042

REACTIONS (3)
  - INFUSION RELATED REACTION [None]
  - RESPIRATORY DISTRESS [None]
  - TACHYCARDIA [None]
